FAERS Safety Report 5682531-X (Version None)
Quarter: 2008Q1

REPORT INFORMATION
  Report Type: 
  Country: None (occurrence: None)
  Receive Date: 20080327
  Receipt Date: 20080227
  Transmission Date: 20080703
  Serious: No
  Sender: FDA-Public Use
  Company Number: US-BRISTOL-MYERS SQUIBB COMPANY-13982681

PATIENT
  Age: 48 Year
  Sex: Male
  Weight: 95 kg

DRUGS (11)
  1. ORENCIA [Suspect]
     Indication: RHEUMATOID ARTHRITIS
     Dosage: IIND DOSE:16OCT07,DURATION:2WK
     Route: 042
     Dates: start: 20071001, end: 20071016
  2. PREDNISONE TAB [Concomitant]
  3. METHOTREXATE [Concomitant]
  4. LANTUS [Concomitant]
  5. ALLEGRA [Concomitant]
  6. ACTOS [Concomitant]
  7. GLIPIZIDE [Concomitant]
  8. TOPROL [Concomitant]
  9. FOLIC ACID [Concomitant]
  10. VIAGRA [Concomitant]
  11. VICODIN [Concomitant]

REACTIONS (3)
  - INFLUENZA LIKE ILLNESS [None]
  - SKIN HYPERPIGMENTATION [None]
  - URTICARIA [None]
